FAERS Safety Report 4736252-8 (Version None)
Quarter: 2005Q3

REPORT INFORMATION
  Report Type: 
  Country: None (occurrence: None)
  Receive Date: 20050805
  Receipt Date: 20050805
  Transmission Date: 20060218
  Serious: Yes (Hospitalization)
  Sender: FDA-Public Use
  Company Number: None

PATIENT
  Sex: Female
  Weight: 112 kg

DRUGS (4)
  1. ADRIAMYCIN PFS [Suspect]
     Indication: BREAST CANCER
     Dosage: 112 MG IV PUSH Q3W
     Route: 042
     Dates: start: 20050721
  2. CYTOXAN [Suspect]
     Indication: BREAST CANCER
     Dosage: 1125 MG IV Q 3 W
     Route: 042
     Dates: start: 20050721
  3. TAXOTERE (75 MG/M21) [Concomitant]
     Indication: BREAST CANCER
     Dosage: 168 MG IV Q 3 W
     Route: 042
     Dates: start: 20050721
  4. NEULASTA [Concomitant]

REACTIONS (2)
  - CLOSTRIDIAL INFECTION [None]
  - FEBRILE NEUTROPENIA [None]
